FAERS Safety Report 4849233-0 (Version None)
Quarter: 2005Q4

REPORT INFORMATION
  Report Type: 
  Country: None (occurrence: None)
  Receive Date: 20051209
  Receipt Date: 20051005
  Transmission Date: 20060501
  Serious: Yes (Hospitalization, Disabling)
  Sender: FDA-Public Use
  Company Number: US-MERCK-0510USA04755

PATIENT
  Age: 61 Year
  Sex: Male
  Weight: 91 kg

DRUGS (3)
  1. VIOXX [Suspect]
     Indication: ARTHRITIS
     Route: 048
     Dates: start: 19980101, end: 20000315
  2. VIOXX [Suspect]
     Route: 048
     Dates: start: 20001201, end: 20010101
  3. SYNTHROID [Concomitant]
     Route: 065

REACTIONS (9)
  - ARTERIAL OCCLUSIVE DISEASE [None]
  - ARTERIAL STENOSIS [None]
  - CARDIOVASCULAR DISORDER [None]
  - GOUT [None]
  - HYPERTENSION [None]
  - MYOCARDIAL INFARCTION [None]
  - POLYARTHRITIS [None]
  - TENDONITIS [None]
  - VASCULAR CALCIFICATION [None]
